FAERS Safety Report 13528640 (Version 1)
Quarter: 2017Q2

REPORT INFORMATION
  Report Type: Spontaneous
  Country: FR (occurrence: FR)
  Receive Date: 20170509
  Receipt Date: 20170509
  Transmission Date: 20170830
  Serious: Yes (Other)
  Sender: FDA-Public Use
  Company Number: FR-PHARMASCIENCE INC.-2020477

PATIENT

DRUGS (4)
  1. BUSILVEX [Suspect]
     Active Substance: BUSULFAN
     Route: 042
  2. THIOTEPA. [Suspect]
     Active Substance: THIOTEPA
     Route: 065
  3. BUSULFAN. [Suspect]
     Active Substance: BUSULFAN
     Indication: CHEMOTHERAPY
     Route: 048
  4. MELPHALAN. [Suspect]
     Active Substance: MELPHALAN
     Route: 065

REACTIONS (1)
  - Staphylococcal sepsis [Unknown]
